FAERS Safety Report 8324569 (Version 2)
Quarter: 2013Q4

REPORT INFORMATION
  Report Type: Spontaneous
  Country: US (occurrence: US)
  Receive Date: 20120106
  Receipt Date: 20131224
  Transmission Date: 20140711
  Serious: Yes (Hospitalization)
  Sender: FDA-Public Use
  Company Number: US-RANBAXY-2011US-51528

PATIENT
  Age: 38 Year
  Sex: Female

DRUGS (3)
  1. RANITIDINE [Suspect]
     Indication: PRODUCT USED FOR UNKNOWN INDICATION
     Dosage: 150 MG;DAILY
     Route: 065
  2. HYDROXYCITRIC ACID HERBAL SUPPLEMENT [Suspect]
     Indication: PRODUCT USED FOR UNKNOWN INDICATION
     Dosage: 500 MG/D 5 DAYS PER WEEK FOR 1 YEAR
     Route: 065
  3. HYDROCODONE/ACETAMINOPHEN [Concomitant]
     Indication: ABDOMINAL PAIN
     Dosage: UNK
     Route: 065

REACTIONS (6)
  - Nausea [Unknown]
  - Abdominal pain [Unknown]
  - Vomiting [Unknown]
  - Hypertension [Unknown]
  - Blood creatinine increased [Recovering/Resolving]
  - Renal failure acute [Recovering/Resolving]
